FAERS Safety Report 14363069 (Version 4)
Quarter: 2018Q1

REPORT INFORMATION
  Report Type: Report from Study
  Country: TR (occurrence: TR)
  Receive Date: 20180108
  Receipt Date: 20180110
  Transmission Date: 20180509
  Serious: Yes (Other)
  Sender: FDA-Public Use
  Company Number: TR-PFIZER INC-2018002425

PATIENT

DRUGS (4)
  1. DACARBAZINE. [Suspect]
     Active Substance: DACARBAZINE
     Indication: HODGKIN^S DISEASE
     Dosage: UNK, CYCLIC, (NO OF CYCLES DURING PREGNANCY: 2)
     Route: 064
  2. DOXORUBICIN HCL [Suspect]
     Active Substance: DOXORUBICIN HYDROCHLORIDE
     Indication: HODGKIN^S DISEASE
     Dosage: UNK, CYCLIC, (NO OF CYCLES DURING PREGNANCY: 2)
     Route: 064
  3. BLEOMYCIN [Suspect]
     Active Substance: BLEOMYCIN SULFATE
     Indication: HODGKIN^S DISEASE
     Dosage: UNK, CYCLIC, (NO OF CYCLES DURING PREGNANCY: 2)
     Route: 064
  4. VINBLASTINE [Suspect]
     Active Substance: VINBLASTINE
     Indication: HODGKIN^S DISEASE
     Dosage: UNK, CYCLIC, (NO OF CYCLES DURING PREGNANCY: 2)
     Route: 064

REACTIONS (3)
  - Foetal growth restriction [Unknown]
  - Premature baby [Unknown]
  - Maternal exposure during pregnancy [Unknown]
